FAERS Safety Report 8245242 (Version 4)
Quarter: 2013Q1

REPORT INFORMATION
  Report Type: Spontaneous
  Country: US (occurrence: US)
  Receive Date: 20111115
  Receipt Date: 20130325
  Transmission Date: 20140127
  Serious: No
  Sender: FDA-Public Use
  Company Number: US-PFIZER INC-2011278773

PATIENT
  Age: 59 Year
  Sex: Male
  Weight: 86.17 kg

DRUGS (14)
  1. GEODON [Suspect]
     Indication: ANXIETY
     Dosage: 20 MG, 3X/DAY
     Dates: start: 2004, end: 2007
  2. GEODON [Interacting]
     Indication: OBSESSIVE-COMPULSIVE DISORDER
     Dosage: 60 MG 3- 20 MG CAPSULES) ONCE DAILY
     Dates: start: 2007
  3. SERTRALINE HCL [Interacting]
     Indication: OBSESSIVE-COMPULSIVE DISORDER
     Dosage: 150 MG, 1X/DAY
     Dates: start: 201207
  4. SERTRALINE HCL [Interacting]
     Indication: DEPRESSION
  5. SERTRALINE HCL [Interacting]
     Indication: ANXIETY
  6. SEROQUEL [Interacting]
     Indication: ANXIETY
     Dosage: 300 MG, 1X/DAY
     Dates: start: 201203, end: 201207
  7. KLONOPIN [Suspect]
     Indication: OBSESSIVE-COMPULSIVE DISORDER
     Dosage: 2 MG, 1X/DAY
     Dates: start: 2004
  8. KLONOPIN [Suspect]
     Dosage: 1 MG, 2X/DAY
  9. KLONOPIN [Suspect]
     Dosage: 0.5 MG, 1X/DAY
  10. PROZAC [Concomitant]
     Indication: DEPRESSION
     Dosage: 40 MG, DAILY
  11. PROZAC [Concomitant]
     Indication: ANXIETY
  12. PROZAC [Concomitant]
     Indication: OBSESSIVE-COMPULSIVE DISORDER
  13. QUESTRAN [Concomitant]
     Indication: BLOOD CHOLESTEROL INCREASED
     Dosage: 4 G, 1X/DAY
  14. FISH OIL [Concomitant]
     Indication: BLOOD CHOLESTEROL INCREASED
     Dosage: 1 TEASPOONFUL, 1X/DAY

REACTIONS (5)
  - Anxiety [Recovered/Resolved]
  - Chest discomfort [Not Recovered/Not Resolved]
  - Dyspnoea [Not Recovered/Not Resolved]
  - Drug interaction [Unknown]
  - Off label use [Not Recovered/Not Resolved]
